FAERS Safety Report 8550632-4 (Version None)
Quarter: 2012Q3

REPORT INFORMATION
  Report Type: 
  Country: None (occurrence: None)
  Receive Date: 20120730
  Receipt Date: 20120720
  Transmission Date: 20120928
  Serious: Yes (Hospitalization)
  Sender: FDA-Public Use
  Company Number: US-JNJFOC-20120711664

PATIENT
  Sex: Female
  Weight: 58.51 kg

DRUGS (2)
  1. XARELTO [Suspect]
     Indication: ANTICOAGULANT THERAPY
     Route: 048
     Dates: start: 20120630, end: 20120703
  2. MANY OTHER UNSPECIFIED MEDICATIONS [Concomitant]

REACTIONS (5)
  - THROMBOSIS [None]
  - DYSARTHRIA [None]
  - VIITH NERVE PARALYSIS [None]
  - MUSCULAR WEAKNESS [None]
  - CEREBROVASCULAR ACCIDENT [None]
